FAERS Safety Report 8108106-0 (Version None)
Quarter: 2011Q4

REPORT INFORMATION
  Report Type: 
  Country: None (occurrence: None)
  Receive Date: 20111223
  Receipt Date: 20110215
  Transmission Date: 20120403
  Serious: Yes (Other)
  Sender: FDA-Public Use
  Company Number: 323477

PATIENT
  Age: 63 Year
  Sex: Male
  Weight: 95.2 kg

DRUGS (2)
  1. LEVEMIR [Suspect]
     Indication: TYPE 1 DIABETES MELLITUS
     Dosage: 25 U, QD, SUBCUTANEOUS
     Route: 058
  2. HUMALOG [Concomitant]

REACTIONS (1)
  - BLOOD GLUCOSE DECREASED [None]
